FAERS Safety Report 13776590 (Version 4)
Quarter: 2017Q4

REPORT INFORMATION
  Report Type: Spontaneous
  Country: BR (occurrence: BR)
  Receive Date: 20170721
  Receipt Date: 20171030
  Transmission Date: 20180320
  Serious: Yes (Other)
  Sender: FDA-Public Use
  Company Number: BR-PFIZER INC-2017311259

PATIENT
  Age: 60 Year
  Sex: Female

DRUGS (3)
  1. RIVOTRIL [Concomitant]
     Active Substance: CLONAZEPAM
     Dosage: UNK
     Dates: start: 2007
  2. SUTENT [Suspect]
     Active Substance: SUNITINIB MALATE
     Indication: RENAL CANCER
     Dosage: 50 MG, DAILY
     Dates: start: 20170706
  3. LOSARTAN. [Concomitant]
     Active Substance: LOSARTAN
     Dosage: UNK

REACTIONS (12)
  - Pharyngeal inflammation [Recovering/Resolving]
  - Dysuria [Recovered/Resolved]
  - Mouth injury [Not Recovered/Not Resolved]
  - Yellow skin [Not Recovered/Not Resolved]
  - Pharyngeal haemorrhage [Recovering/Resolving]
  - Odynophagia [Not Recovered/Not Resolved]
  - Nausea [Recovered/Resolved]
  - Pain [Recovered/Resolved]
  - Vaginal lesion [Not Recovered/Not Resolved]
  - Glossodynia [Not Recovered/Not Resolved]
  - Throat irritation [Recovering/Resolving]
  - Anal haemorrhage [Recovered/Resolved]

NARRATIVE: CASE EVENT DATE: 2017
